FAERS Safety Report 4599386-7 (Version None)
Quarter: 2005Q1

REPORT INFORMATION
  Report Type: 
  Country: None (occurrence: None)
  Receive Date: 20050302
  Receipt Date: 20050302
  Transmission Date: 20050727
  Serious: Yes (Disabling)
  Sender: FDA-Public Use
  Company Number: None

PATIENT
  Age: 33 Year
  Sex: Female
  Weight: 61.2356 kg

DRUGS (3)
  1. LEVAQUIN [Suspect]
     Indication: PYELONEPHRITIS
     Dosage: 500 MG PO QD
     Route: 048
     Dates: start: 20051203, end: 20051206
  2. LEVAQUIN [Suspect]
     Indication: URINARY TRACT INFECTION
     Dosage: 500 MG PO QD
     Route: 048
     Dates: start: 20051203, end: 20051206
  3. DIFLUCAN [Concomitant]

REACTIONS (7)
  - ARTHRALGIA [None]
  - CRYING [None]
  - FLUSHING [None]
  - JOINT RANGE OF MOTION DECREASED [None]
  - NEUROPATHY [None]
  - TENDON DISORDER [None]
  - TENDONITIS [None]
